FAERS Safety Report 8103515-8 (Version None)
Quarter: 2012Q1

REPORT INFORMATION
  Report Type: 
  Country: None (occurrence: None)
  Receive Date: 20120201
  Receipt Date: 20120125
  Transmission Date: 20120608
  Serious: Yes (Other)
  Sender: FDA-Public Use
  Company Number: PHEH2010US02602

PATIENT
  Sex: Female
  Weight: 49.887 kg

DRUGS (16)
  1. FEMARA [Concomitant]
  2. PLAVIX [Concomitant]
  3. ANTI-ESTROGENS [Concomitant]
  4. ZOMETA [Suspect]
     Dosage: 4 MG, Q3MO
     Route: 042
     Dates: start: 20060301
  5. NITROGLYCERIN [Concomitant]
  6. ENOXAPARIN [Concomitant]
  7. TEMAZEPAM [Concomitant]
  8. LOPRESSOR [Concomitant]
  9. ASPIRIN [Concomitant]
  10. ZOMETA [Suspect]
     Indication: OSTEOPOROSIS
     Dosage: 4 MG, Q3MO
     Route: 042
     Dates: start: 20050901, end: 20080301
  11. METOPROLOL TARTRATE [Concomitant]
  12. OXYGEN [Concomitant]
  13. AMOXICILLIN [Concomitant]
  14. METRONIDAZOLE [Concomitant]
  15. TAMOXIFEN CITRATE [Concomitant]
  16. ADVAIR DISKUS 100/50 [Concomitant]
     Dosage: 2 A DAY.

REACTIONS (26)
  - MUSCLE SPASMS [None]
  - DEPRESSION [None]
  - INJURY [None]
  - PAIN [None]
  - EXPOSED BONE IN JAW [None]
  - INFECTION [None]
  - HEPATIC CYST [None]
  - OSTEOPENIA [None]
  - INFLUENZA [None]
  - LOOSE TOOTH [None]
  - PRIMARY SEQUESTRUM [None]
  - PALATAL OEDEMA [None]
  - ANXIETY [None]
  - HYPERTENSION [None]
  - BONE LOSS [None]
  - OSTEONECROSIS OF JAW [None]
  - DISABILITY [None]
  - GENERAL PHYSICAL HEALTH DETERIORATION [None]
  - IMPAIRED HEALING [None]
  - ULCER HAEMORRHAGE [None]
  - ANGINA UNSTABLE [None]
  - ARRHYTHMIA [None]
  - TENDERNESS [None]
  - DYSPNOEA [None]
  - ANHEDONIA [None]
  - PERIODONTITIS [None]
